FAERS Safety Report 18043813 (Version 1)
Quarter: 2020Q3

REPORT INFORMATION
  Report Type: Spontaneous
  Country: US (occurrence: US)
  Receive Date: 20200717
  Receipt Date: 20200717
  Transmission Date: 20201103
  Serious: Yes (Hospitalization)
  Sender: FDA-Public Use
  Company Number: None

PATIENT
  Sex: Female
  Weight: 59 kg

DRUGS (1)
  1. NALOXEGOL OXALATE (787509) [Suspect]
     Active Substance: NALOXEGOL OXALATE
     Dates: end: 20200706

REACTIONS (8)
  - Pneumonia [None]
  - Lung neoplasm malignant [None]
  - Pneumothorax [None]
  - Atelectasis [None]
  - Pleural effusion [None]
  - Chronic kidney disease [None]
  - CD4 lymphocytes decreased [None]
  - Dyspnoea exertional [None]

NARRATIVE: CASE EVENT DATE: 20200706
